FAERS Safety Report 7216181-0 (Version None)
Quarter: 2011Q1

REPORT INFORMATION
  Report Type: 
  Country: None (occurrence: None)
  Receive Date: 20110107
  Receipt Date: 20110104
  Transmission Date: 20110831
  Serious: Yes (Death)
  Sender: FDA-Public Use
  Company Number: GR-PFIZER INC-2011001272

PATIENT
  Age: 70 Year
  Sex: Male
  Weight: 75 kg

DRUGS (4)
  1. TEICOPLANIN [Suspect]
     Indication: ABDOMINAL INFECTION
     Dosage: 400 MG, 1X/DAY
     Route: 042
     Dates: start: 20090304
  2. FLUCONAZOLE [Suspect]
     Indication: ABDOMINAL INFECTION
     Dosage: 100 MG, 1X/DAY
     Route: 042
     Dates: start: 20090304, end: 20090305
  3. MEROPENEM [Suspect]
     Indication: ABDOMINAL INFECTION
     Dosage: 1 G, 1X/DAY
     Route: 042
     Dates: start: 20090304, end: 20090305
  4. PIPERACILLIN AND TAZOBACTAM [Suspect]
     Indication: ABDOMINAL INFECTION
     Dosage: 0.5 UNK, 3X/DAY
     Route: 042
     Dates: start: 20090304, end: 20090305

REACTIONS (5)
  - RESPIRATORY FAILURE [None]
  - CARDIAC FAILURE [None]
  - SYSTEMIC INFLAMMATORY RESPONSE SYNDROME [None]
  - SEPSIS [None]
  - MULTI-ORGAN FAILURE [None]
